FAERS Safety Report 22196741 (Version 1)
Quarter: 2023Q2

REPORT INFORMATION
  Report Type: Spontaneous
  Country: US (occurrence: None)
  Receive Date: 20230410
  Receipt Date: 20230410
  Transmission Date: 20230722
  Serious: Yes (Disabling)
  Sender: FDA-Public Use
  Company Number: None

PATIENT
  Age: 52 Year
  Sex: 0

DRUGS (1)
  1. CLONAZEPAM [Suspect]
     Active Substance: CLONAZEPAM
     Indication: Anxiety
     Dates: start: 20090101, end: 20200701

REACTIONS (11)
  - Anterograde amnesia [None]
  - Drug tolerance [None]
  - Anxiety [None]
  - Depression [None]
  - Inappropriate schedule of product discontinuation [None]
  - Drug withdrawal syndrome [None]
  - Akathisia [None]
  - Anhedonia [None]
  - Myoclonus [None]
  - Cognitive disorder [None]
  - Therapy cessation [None]

NARRATIVE: CASE EVENT DATE: 20200601
